FAERS Safety Report 25891120 (Version 1)
Quarter: 2025Q4

REPORT INFORMATION
  Report Type: Spontaneous
  Country: US (occurrence: US)
  Receive Date: 20251007
  Receipt Date: 20251007
  Transmission Date: 20260119
  Serious: No
  Sender: VERONA PHARMA
  Company Number: US-VERONA PHARMA-VER-007527

PATIENT
  Sex: Female

DRUGS (1)
  1. OHTUVAYRE [Suspect]
     Active Substance: ENSIFENTRINE
     Indication: Product used for unknown indication
     Dosage: 3 MILLIGRAM
     Dates: start: 20250718, end: 20250721

REACTIONS (1)
  - Dyspnoea [Unknown]

NARRATIVE: CASE EVENT DATE: 20250718
